FAERS Safety Report 5400927-8 (Version None)
Quarter: 2007Q3

REPORT INFORMATION
  Report Type: 
  Country: None (occurrence: None)
  Receive Date: 20070730
  Receipt Date: 20070208
  Transmission Date: 20080115
  Serious: No
  Sender: FDA-Public Use
  Company Number: A0638898A

PATIENT
  Age: 57 Day
  Sex: Male

DRUGS (1)
  1. ZANTAC 150 [Suspect]
     Dosage: 5ML TWICE PER DAY
     Route: 048
     Dates: start: 20070116, end: 20070206

REACTIONS (6)
  - ABDOMINAL PAIN UPPER [None]
  - ACCIDENTAL OVERDOSE [None]
  - MEDICATION ERROR [None]
  - NIPPLE DISORDER [None]
  - PRURITUS [None]
  - RASH [None]
